FAERS Safety Report 20840682 (Version 1)
Quarter: 2022Q2

REPORT INFORMATION
  Report Type: Spontaneous
  Country: US (occurrence: None)
  Receive Date: 20220517
  Receipt Date: 20220517
  Transmission Date: 20220721
  Serious: Yes (Other)
  Sender: FDA-Public Use
  Company Number: None

PATIENT
  Age: 82 Year
  Sex: Female
  Weight: 60.5 kg

DRUGS (15)
  1. LEVOFLOXACIN [Suspect]
     Active Substance: LEVOFLOXACIN
     Indication: Pneumonia
     Dosage: FREQUENCY : DAILY;?
     Route: 048
     Dates: start: 20220512, end: 20220514
  2. ZETIA [Concomitant]
     Active Substance: EZETIMIBE
  3. FENOFIBRATE [Concomitant]
     Active Substance: FENOFIBRATE
  4. FLOVENT [Concomitant]
     Active Substance: FLUTICASONE PROPIONATE
  5. IBUPROFEN [Concomitant]
     Active Substance: IBUPROFEN
  6. LOSARTAN [Concomitant]
     Active Substance: LOSARTAN
  7. MUCINEX [Concomitant]
     Active Substance: GUAIFENESIN
  8. NITROGLYCERIN [Concomitant]
     Active Substance: NITROGLYCERIN
  9. OMEPRAZOLE [Concomitant]
     Active Substance: OMEPRAZOLE
  10. PROAIR HFA [Concomitant]
     Active Substance: ALBUTEROL SULFATE
  11. SYNTHROID [Concomitant]
     Active Substance: LEVOTHYROXINE SODIUM
  12. Multivitamin B [Concomitant]
  13. METROGEL [Concomitant]
     Active Substance: METRONIDAZOLE
  14. Flouorometholone [Concomitant]
  15. EPIPEN [Concomitant]
     Active Substance: EPINEPHRINE

REACTIONS (3)
  - Asthenia [None]
  - Myalgia [None]
  - Pain in extremity [None]

NARRATIVE: CASE EVENT DATE: 20220512
